FAERS Safety Report 9893359 (Version 1)
Quarter: 2014Q1

REPORT INFORMATION
  Report Type: Spontaneous
  Country: VI (occurrence: VI)
  Receive Date: 20140213
  Receipt Date: 20140213
  Transmission Date: 20141002
  Serious: Yes (Other)
  Sender: FDA-Public Use
  Company Number: VG-ASTRAZENECA-2014SE08540

PATIENT
  Age: 65 Year
  Sex: Female
  Weight: 74.4 kg

DRUGS (5)
  1. OMEPRAZOLE [Suspect]
     Indication: GASTROOESOPHAGEAL REFLUX DISEASE
     Dosage: DAILY
     Route: 048
     Dates: start: 201308
  2. GENERIC LIPITOR [Concomitant]
     Route: 048
     Dates: start: 2012
  3. ASPIRIN [Concomitant]
     Indication: PROPHYLAXIS
     Route: 048
     Dates: start: 201308
  4. ZOLPIDEM [Concomitant]
     Route: 048
     Dates: start: 2012
  5. EYE DROPS [Concomitant]
     Indication: GLAUCOMA
     Route: 048
     Dates: start: 2013

REACTIONS (3)
  - Haematemesis [Unknown]
  - Cough [Unknown]
  - Drug effect decreased [Unknown]
